FAERS Safety Report 11086655 (Version 1)
Quarter: 2015Q2

REPORT INFORMATION
  Report Type: Spontaneous
  Country: IT (occurrence: IT)
  Receive Date: 20150504
  Receipt Date: 20150504
  Transmission Date: 20150821
  Serious: Yes (Hospitalization)
  Sender: FDA-Public Use
  Company Number: IT-JNJFOC-20150418893

PATIENT
  Age: 9 Year
  Sex: Male

DRUGS (10)
  1. METOCLOPRAMIDE. [Interacting]
     Active Substance: METOCLOPRAMIDE
     Indication: INFLUENZA
     Route: 065
  2. BUTAMIRATE CITRATE [Interacting]
     Active Substance: BUTAMIRATE CITRATE
     Indication: INFLUENZA
     Route: 065
  3. RITALIN [Concomitant]
     Active Substance: METHYLPHENIDATE HYDROCHLORIDE
     Route: 065
  4. PARACETAMOL [Interacting]
     Active Substance: ACETAMINOPHEN
     Route: 065
  5. DOMPERIDONE [Interacting]
     Active Substance: DOMPERIDONE
     Indication: INFLUENZA
     Route: 065
  6. IBUPROFEN. [Suspect]
     Active Substance: IBUPROFEN
     Indication: INFLUENZA
     Route: 065
  7. PARACETAMOL [Interacting]
     Active Substance: ACETAMINOPHEN
     Indication: INFLUENZA
     Route: 065
  8. DEXAMETHASONE. [Interacting]
     Active Substance: DEXAMETHASONE
     Indication: INFLUENZA
     Route: 065
  9. IBUPROFEN. [Suspect]
     Active Substance: IBUPROFEN
     Route: 065
  10. RISPERDAL [Interacting]
     Active Substance: RISPERIDONE
     Indication: PRODUCT USED FOR UNKNOWN INDICATION
     Route: 048
     Dates: start: 20140928, end: 20150110

REACTIONS (2)
  - Bradycardia [Recovered/Resolved]
  - Drug interaction [Unknown]

NARRATIVE: CASE EVENT DATE: 20150118
